FAERS Safety Report 6642828-3 (Version None)
Quarter: 2010Q1

REPORT INFORMATION
  Report Type: 
  Country: None (occurrence: None)
  Receive Date: 20100319
  Receipt Date: 20100310
  Transmission Date: 20100710
  Serious: Yes (Hospitalization, Other)
  Sender: FDA-Public Use
  Company Number: US-ELI_LILLY_AND_COMPANY-US200906005603

PATIENT
  Sex: Female
  Weight: 122.45 kg

DRUGS (39)
  1. BYETTA [Suspect]
     Indication: TYPE 2 DIABETES MELLITUS
     Dosage: 5 UG, 2/D
     Route: 058
     Dates: start: 20060522, end: 20061001
  2. BYETTA [Suspect]
     Dosage: 10 UG, 2/D
     Route: 058
     Dates: start: 20061001, end: 20070801
  3. NOVOLOG MIX 70/30 [Concomitant]
     Dosage: 100 U, EACH MORNING
  4. NOVOLOG MIX 70/30 [Concomitant]
     Dosage: 40 U, DAILY (1/D)
     Dates: end: 20061001
  5. NOVOLOG MIX 70/30 [Concomitant]
     Dosage: 50 U, DAILY (1/D)
     Dates: start: 20061001
  6. NOVOLOG MIX 70/30 [Concomitant]
     Dosage: 40 U, EACH EVENING
     Dates: end: 20061001
  7. NOVOLOG MIX 70/30 [Concomitant]
     Dosage: 100 U, EACH EVENING
     Dates: start: 20061001
  8. METFORMIN [Concomitant]
     Indication: TYPE 2 DIABETES MELLITUS
     Dosage: 1 G, 2/D
  9. MOBIC [Concomitant]
     Dosage: 7.5 MG, DAILY (1/D)
  10. ENALAPRIL MALEATE [Concomitant]
     Dosage: 20 MG, 2/D
  11. FUROSEMIDE [Concomitant]
     Dosage: 40 MG, DAILY (1/D)
  12. LOVASTATIN [Concomitant]
     Dosage: 80 MG, DAILY (1/D)
  13. SINEMET LP 50/200 [Concomitant]
     Dosage: UNK, EACH EVENING
  14. IMITREX [Concomitant]
     Dosage: 50 MG, AS NEEDED
  15. ALBUTEROL [Concomitant]
     Dosage: UNK, AS NEEDED
  16. MULTI-VITAMIN [Concomitant]
  17. VITAMIN B6 [Concomitant]
     Dosage: UNK, DAILY (1/D)
  18. LYRICA [Concomitant]
     Dosage: 100 MG, 2/D
  19. ASPIRIN [Concomitant]
     Dosage: 81 MG, DAILY (1/D)
  20. PREMARIN [Concomitant]
     Dosage: 0.625 MG, DAILY (1/D)
  21. NEXIUM [Concomitant]
     Dosage: 40 MG, DAILY (1/D)
  22. HYDROCHLOROTHIAZIDE [Concomitant]
     Dosage: 25 MG, DAILY (1/D)
  23. BENTYL [Concomitant]
     Dosage: 10 MG, UNK
  24. NPH INSULIN [Concomitant]
     Dosage: 80 U, EACH MORNING
     Dates: end: 20070101
  25. NPH INSULIN [Concomitant]
     Dosage: 82 U, EACH EVENING
     Dates: end: 20070101
  26. NPH INSULIN [Concomitant]
     Dosage: 60 U, 3/D
     Dates: start: 20070101
  27. DOXYCYCLINE [Concomitant]
  28. PROMETHAZINE [Concomitant]
  29. HYDROCODONE BITARTRATE AND ACETAMINOPHEN [Concomitant]
  30. PROPOXYPHENE NAPSYLATE W/PARACETAMOL [Concomitant]
  31. OMEPRAZOLE [Concomitant]
  32. CHLORZOXAZONE [Concomitant]
  33. MELOXICAM [Concomitant]
  34. CEFTIN [Concomitant]
  35. ADVAIR DISKUS 100/50 [Concomitant]
     Dosage: UNK, 2/D
  36. PIROXICAM [Concomitant]
     Dosage: 20 MG, QOD
  37. SINEMET [Concomitant]
     Dosage: UNK, EACH EVENING
  38. CENTRUM /00554501/ [Concomitant]
     Dosage: UNK, DAILY (1/D)
  39. CALCIUM [Concomitant]

REACTIONS (7)
  - DYSARTHRIA [None]
  - DYSPEPSIA [None]
  - LOSS OF CONSCIOUSNESS [None]
  - OFF LABEL USE [None]
  - PANCREATITIS [None]
  - RENAL INJURY [None]
  - SYNCOPE [None]
